FAERS Safety Report 24796013 (Version 10)
Quarter: 2025Q2

REPORT INFORMATION
  Report Type: Spontaneous
  Country: US (occurrence: US)
  Receive Date: 20250101
  Receipt Date: 20250626
  Transmission Date: 20250716
  Serious: Yes (Life-Threatening)
  Sender: SANOFI AVENTIS
  Company Number: US-SANOFI-02355495

PATIENT
  Age: 76 Year
  Sex: Male

DRUGS (3)
  1. APIDRA SOLOSTAR [Suspect]
     Active Substance: INSULIN GLULISINE
     Indication: Type 2 diabetes mellitus
     Route: 065
     Dates: start: 2024
  2. APIDRA SOLOSTAR [Suspect]
     Active Substance: INSULIN GLULISINE
     Indication: Type 1 diabetes mellitus
     Route: 065
  3. APIDRA SOLOSTAR [Suspect]
     Active Substance: INSULIN GLULISINE
     Dosage: 15-18 UNITS 3 TIMES A DAY
     Route: 065

REACTIONS (9)
  - General physical health deterioration [Unknown]
  - Renal disorder [Unknown]
  - Glycosylated haemoglobin increased [Unknown]
  - Device mechanical issue [Unknown]
  - Visual impairment [Unknown]
  - Injection site pain [Unknown]
  - Blood glucose increased [Unknown]
  - Intentional product misuse [Unknown]
  - Incorrect dose administered by device [Unknown]

NARRATIVE: CASE EVENT DATE: 20240101
